FAERS Safety Report 8781798 (Version 2)
Quarter: 2012Q4

REPORT INFORMATION
  Report Type: 
  Country: DE (occurrence: DE)
  Receive Date: 20120913
  Receipt Date: 20120921
  Transmission Date: 20130627
  Serious: Yes (Hospitalization, Other)
  Sender: FDA-Public Use
  Company Number: DE-GENZYME-THYM-1003400

PATIENT
  Sex: Male
  Weight: 57 kg

DRUGS (14)
  1. THYMOGLOBULINE [Suspect]
     Indication: RENAL TRANSPLANT
     Dosage: 80 mg, qd
     Route: 042
     Dates: start: 20120714
  2. TACROLIMUS [Suspect]
     Indication: RENAL TRANSPLANT
     Dosage: 17 mg, UNK
     Route: 048
     Dates: start: 20120714
  3. CELLCEPT [Suspect]
     Indication: RENAL TRANSPLANT
     Dosage: 1000 mg, bid
     Route: 048
     Dates: start: 20120714
  4. CELLCEPT [Suspect]
     Dosage: 250 mg, bid
     Route: 048
     Dates: start: 20120912
  5. DECORTIN H [Suspect]
     Indication: RENAL TRANSPLANT
     Dosage: 25 mg, qd
     Route: 048
     Dates: start: 20120714
  6. RAMIPRIL [Concomitant]
     Indication: PRODUCT USED FOR UNKNOWN INDICATION
     Dosage: 5 mg, qd
     Route: 065
     Dates: start: 201208
  7. VALCYTE [Concomitant]
     Indication: PRODUCT USED FOR UNKNOWN INDICATION
     Dosage: 450 mg, 3x/w
     Route: 065
  8. AMPHOTERICIN B [Concomitant]
     Indication: PRODUCT USED FOR UNKNOWN INDICATION
     Dosage: 600 mg, qd
     Route: 065
  9. CARMEN [Concomitant]
     Indication: PRODUCT USED FOR UNKNOWN INDICATION
     Dosage: 20 mg, qd
     Route: 065
  10. PANTOZOL [Concomitant]
     Indication: PRODUCT USED FOR UNKNOWN INDICATION
     Dosage: 40 mg, qd
     Route: 065
  11. ROCALTROL [Concomitant]
     Indication: PRODUCT USED FOR UNKNOWN INDICATION
     Dosage: 0.25 mg, qd
     Route: 065
  12. DELIX [Concomitant]
     Indication: PRODUCT USED FOR UNKNOWN INDICATION
     Dosage: 25 mg, UNK
     Route: 065
     Dates: start: 20120829, end: 201209
  13. KEPINOL [Concomitant]
     Indication: PRODUCT USED FOR UNKNOWN INDICATION
     Dosage: 480 mg, 3x/w
     Route: 065
  14. CALCITRIOL [Concomitant]
     Indication: PRODUCT USED FOR UNKNOWN INDICATION
     Dosage: 0.85 mcg, UNK
     Route: 065

REACTIONS (5)
  - Transplant failure [Unknown]
  - Fluid retention [Unknown]
  - Polyomavirus-associated nephropathy [Not Recovered/Not Resolved]
  - BK virus infection [Not Recovered/Not Resolved]
  - Complications of transplanted kidney [Recovered/Resolved]
